FAERS Safety Report 17980404 (Version 1)
Quarter: 2020Q3

REPORT INFORMATION
  Report Type: Spontaneous
  Country: US (occurrence: US)
  Receive Date: 20200703
  Receipt Date: 20200703
  Transmission Date: 20201103
  Serious: No
  Sender: FDA-Public Use
  Company Number: US-AMGEN-USASP2020106143

PATIENT
  Age: 69 Year
  Sex: Male

DRUGS (7)
  1. PRIMIDONE. [Concomitant]
     Active Substance: PRIMIDONE
  2. ATORVASTATIN [Concomitant]
     Active Substance: ATORVASTATIN
  3. ISONIAZID. [Concomitant]
     Active Substance: ISONIAZID
  4. OTEZLA [Suspect]
     Active Substance: APREMILAST
     Indication: PSORIASIS
     Dosage: 30 MILLIGRAM, BID
     Route: 048
     Dates: start: 20200316
  5. PRASUGREL. [Concomitant]
     Active Substance: PRASUGREL
  6. METOPROLOL SUCCINATE. [Concomitant]
     Active Substance: METOPROLOL SUCCINATE
  7. METFORMIN [Concomitant]
     Active Substance: METFORMIN HYDROCHLORIDE

REACTIONS (2)
  - Decreased appetite [Not Recovered/Not Resolved]
  - Therapy partial responder [Not Recovered/Not Resolved]

NARRATIVE: CASE EVENT DATE: 2020
